FAERS Safety Report 10741784 (Version 1)
Quarter: 2015Q1

REPORT INFORMATION
  Report Type: Spontaneous
  Country: US (occurrence: None)
  Receive Date: 20150123
  Receipt Date: 20150123
  Transmission Date: 20150721
  Serious: Yes (Death)
  Sender: FDA-Public Use
  Company Number: 2015COR00012

PATIENT
  Age: 69 Year
  Sex: Male

DRUGS (3)
  1. OXYCODONE [Suspect]
     Active Substance: OXYCODONE
  2. ACETAMINOPHEN. [Suspect]
     Active Substance: ACETAMINOPHEN
  3. AMLODIPINE [Suspect]
     Active Substance: AMLODIPINE BESYLATE

REACTIONS (15)
  - Respiratory depression [None]
  - Metabolic acidosis [None]
  - Anion gap abnormal [None]
  - Hepatotoxicity [None]
  - Pancytopenia [None]
  - Acute kidney injury [None]
  - Rhabdomyolysis [None]
  - Hypotension [None]
  - Leukocytosis [None]
  - Coagulopathy [None]
  - Hypoglycaemia [None]
  - Thrombocytopenia [None]
  - Pneumonia aspiration [None]
  - Tachycardia [None]
  - Coma [None]
